FAERS Safety Report 6046044-8 (Version None)
Quarter: 2009Q1

REPORT INFORMATION
  Report Type: 
  Country: None (occurrence: None)
  Receive Date: 20090116
  Receipt Date: 20090113
  Transmission Date: 20090719
  Serious: Yes (Hospitalization)
  Sender: FDA-Public Use
  Company Number: CERZ-1000409

PATIENT
  Age: 46 Month
  Sex: Male
  Weight: 12.4 kg

DRUGS (4)
  1. CEREZYME [Suspect]
     Indication: GAUCHER'S DISEASE
     Dosage: 120 U/KG, Q2W, INTRAVENOUS; 60 U/KG, Q2W, INTRAVENOUS
     Route: 042
     Dates: start: 20060830, end: 20070101
  2. CEREZYME [Suspect]
     Indication: GAUCHER'S DISEASE
     Dosage: 120 U/KG, Q2W, INTRAVENOUS; 60 U/KG, Q2W, INTRAVENOUS
     Route: 042
     Dates: start: 20070301
  3. FEROSOL (IRON) [Concomitant]
  4. ADVAIR DISKUS 100/50 [Concomitant]

REACTIONS (7)
  - ADHESION [None]
  - BRONCHITIS [None]
  - NASAL DISORDER [None]
  - OXYGEN SATURATION DECREASED [None]
  - RESPIRATORY ARREST [None]
  - RESPIRATORY TRACT INFECTION [None]
  - UPPER RESPIRATORY TRACT INFECTION [None]
